FAERS Safety Report 14876738 (Version 1)
Quarter: 2018Q2

REPORT INFORMATION
  Report Type: Spontaneous
  Country: US (occurrence: US)
  Receive Date: 20180510
  Receipt Date: 20180510
  Transmission Date: 20180711
  Serious: Yes (Life-Threatening)
  Sender: FDA-Public Use
  Company Number: US-MYLANLABS-2018M1030656

PATIENT
  Age: 59 Year
  Sex: Female

DRUGS (1)
  1. BUPIVACAINE. [Suspect]
     Active Substance: BUPIVACAINE
     Indication: LOCAL ANAESTHESIA
     Route: 050

REACTIONS (3)
  - Pulseless electrical activity [Recovering/Resolving]
  - Bradycardia [Recovering/Resolving]
  - Toxicity to various agents [Recovering/Resolving]
